FAERS Safety Report 24948573 (Version 2)
Quarter: 2025Q1

REPORT INFORMATION
  Report Type: Report from Study
  Country: CL (occurrence: CL)
  Receive Date: 20250210
  Receipt Date: 20250221
  Transmission Date: 20250408
  Serious: Yes (Disabling, Other)
  Sender: ROCHE
  Company Number: CL-ROCHE-10000200650

PATIENT
  Age: 72 Year
  Sex: Male
  Weight: 76 kg

DRUGS (11)
  1. VABYSMO [Suspect]
     Active Substance: FARICIMAB-SVOA
     Indication: Neovascular age-related macular degeneration
     Route: 050
     Dates: start: 202409
  2. AVASTIN [Suspect]
     Active Substance: BEVACIZUMAB
     Indication: Neovascular age-related macular degeneration
     Route: 050
  3. Diondel [Concomitant]
     Indication: Product used for unknown indication
     Dosage: 1/2 TABLET EVERY 12 HOURS
  4. NEBIVOLOL [Concomitant]
     Active Substance: NEBIVOLOL
  5. XARELTO [Concomitant]
     Active Substance: RIVAROXABAN
  6. TAMSULOSIN [Concomitant]
     Active Substance: TAMSULOSIN
  7. CETIRIZINE HYDROCHLORIDE [Concomitant]
     Active Substance: CETIRIZINE HYDROCHLORIDE
  8. NASONEX [Concomitant]
     Active Substance: MOMETASONE FUROATE
     Indication: Product used for unknown indication
     Route: 045
  9. CLONAZEPAM [Concomitant]
     Active Substance: CLONAZEPAM
  10. Latof SP [Concomitant]
     Dosage: 1 DROP IN EACH EYE 1 TIME A DAY
  11. Seniors^ Daily one [Concomitant]
     Dosage: 1 TABLET DAILY

REACTIONS (4)
  - Cerebrovascular accident [Recovered/Resolved]
  - Blindness [Recovered/Resolved]
  - Off label use [Unknown]
  - Off label use [Unknown]

NARRATIVE: CASE EVENT DATE: 20250110
